FAERS Safety Report 13696099 (Version 1)
Quarter: 2017Q2

REPORT INFORMATION
  Report Type: Report from Study
  Country: None (occurrence: BE)
  Receive Date: 20170628
  Receipt Date: 20170628
  Transmission Date: 20170830
  Serious: Yes (Death, Hospitalization)
  Sender: FDA-Public Use
  Company Number: BE-ABBVIE-15P-013-1412941-00

PATIENT
  Age: 76 Year
  Sex: Female

DRUGS (18)
  1. DUODOPA [Suspect]
     Active Substance: CARBIDOPA\LEVODOPA
     Dosage: AM = 1.9 ML, CD = 1.3 ML/H DURING 16H, ED = 0.3 ML
     Route: 050
     Dates: start: 20150612, end: 20150612
  2. VITAMIN B12 [Concomitant]
     Active Substance: CYANOCOBALAMIN
     Indication: PRODUCT USED FOR UNKNOWN INDICATION
  3. DUODOPA [Suspect]
     Active Substance: CARBIDOPA\LEVODOPA
     Indication: PARKINSON^S DISEASE
     Dosage: AM = 1.6 ML, CD = 2.4 ML/H DURING 16H, ED = 0.4 ML
     Route: 050
     Dates: start: 20150126, end: 20150127
  4. DUODOPA [Suspect]
     Active Substance: CARBIDOPA\LEVODOPA
     Dosage: AM=1.9ML;CD=1.3ML/HR DURING 16HRS; ED=0.3ML
     Route: 050
     Dates: start: 20150612, end: 20150629
  5. STEOVIT D3 [Concomitant]
     Active Substance: CALCIUM CARBONATE\CHOLECALCIFEROL
     Indication: PRODUCT USED FOR UNKNOWN INDICATION
  6. TASMAR [Concomitant]
     Active Substance: TOLCAPONE
     Indication: PARKINSON^S DISEASE
  7. PANTOMED [Concomitant]
     Active Substance: DEXPANTHENOL
     Indication: PRODUCT USED FOR UNKNOWN INDICATION
  8. FOLAVIT [Concomitant]
     Indication: PRODUCT USED FOR UNKNOWN INDICATION
  9. DUODOPA [Suspect]
     Active Substance: CARBIDOPA\LEVODOPA
     Dosage: AM=1.9ML; CD=1.1ML/HR DURING 16HRS; ED=0 ML
     Route: 050
     Dates: start: 20160126
  10. ALENDRONATE [Concomitant]
     Active Substance: ALENDRONATE SODIUM
     Indication: PRODUCT USED FOR UNKNOWN INDICATION
  11. DUODOPA [Suspect]
     Active Substance: CARBIDOPA\LEVODOPA
     Dosage: DOSE CONTINUOUSLY MONITORED AND ADAPTED
     Route: 050
     Dates: start: 20150127, end: 20150609
  12. DUODOPA [Suspect]
     Active Substance: CARBIDOPA\LEVODOPA
     Dosage: UNKNOWN
     Route: 050
     Dates: start: 20150629, end: 20160126
  13. AZILECT [Concomitant]
     Active Substance: RASAGILINE MESYLATE
     Indication: PARKINSON^S DISEASE
  14. SIMVASTATINE [Concomitant]
     Active Substance: SIMVASTATIN
     Indication: PRODUCT USED FOR UNKNOWN INDICATION
  15. PARACETAMOL [Concomitant]
     Active Substance: ACETAMINOPHEN
     Indication: PRODUCT USED FOR UNKNOWN INDICATION
     Dosage: IN CASE OF PAIN: MAXIMUM 2 IN 1 DAY
  16. SEROQUEL [Concomitant]
     Active Substance: QUETIAPINE FUMARATE
     Indication: PRODUCT USED FOR UNKNOWN INDICATION
  17. DUODOPA [Suspect]
     Active Substance: CARBIDOPA\LEVODOPA
     Dosage: AM = 1.9 ML, CD = 1.3 ML/H DURING 16H, ED = 0.3 ML
     Route: 050
     Dates: start: 20150609, end: 20150612
  18. D-CURE [Concomitant]
     Indication: PRODUCT USED FOR UNKNOWN INDICATION

REACTIONS (15)
  - Stress [Not Recovered/Not Resolved]
  - Freezing phenomenon [Recovering/Resolving]
  - Drug dose omission [Unknown]
  - Personality change [Unknown]
  - Dyskinesia [Not Recovered/Not Resolved]
  - Stoma site erythema [Unknown]
  - Fluid intake reduced [Unknown]
  - Pyrexia [Unknown]
  - Incorrect route of drug administration [Recovered/Resolved]
  - Cognitive disorder [Unknown]
  - Device occlusion [Unknown]
  - Tremor [Not Recovered/Not Resolved]
  - Stoma site hypergranulation [Recovering/Resolving]
  - Confusional state [Unknown]
  - Death [Fatal]

NARRATIVE: CASE EVENT DATE: 20150612
